FAERS Safety Report 8208609-4 (Version None)
Quarter: 2012Q1

REPORT INFORMATION
  Report Type: 
  Country: None (occurrence: None)
  Receive Date: 20120314
  Receipt Date: 20120308
  Transmission Date: 20120608
  Serious: Yes (Other)
  Sender: FDA-Public Use
  Company Number: JP-GLAXOSMITHKLINE-B0787973A

PATIENT

DRUGS (1)
  1. RELENZA [Suspect]
     Indication: ANTIVIRAL PROPHYLAXIS
     Route: 055

REACTIONS (2)
  - OBSESSIVE THOUGHTS [None]
  - DELIRIUM [None]
